FAERS Safety Report 7178243-6 (Version None)
Quarter: 2010Q4

REPORT INFORMATION
  Report Type: 
  Country: None (occurrence: None)
  Receive Date: 20101220
  Receipt Date: 20101208
  Transmission Date: 20110411
  Serious: Yes (Hospitalization, Disabling, Other)
  Sender: FDA-Public Use
  Company Number: US-ROCHE-727484

PATIENT
  Sex: Male
  Weight: 127 kg

DRUGS (3)
  1. ACCUTANE [Suspect]
     Indication: ACNE
     Dosage: APPROXIMATELY SIX MONTH
     Route: 065
     Dates: start: 20000101
  2. ACCUTANE [Suspect]
     Route: 065
     Dates: start: 20010101
  3. PREDNISONE [Concomitant]

REACTIONS (12)
  - ANAL ABSCESS [None]
  - COLITIS ULCERATIVE [None]
  - CROHN'S DISEASE [None]
  - DEPRESSION [None]
  - ERYTHEMA NODOSUM [None]
  - GASTROINTESTINAL INJURY [None]
  - HERNIA [None]
  - HYPERTENSION [None]
  - INFLAMMATORY BOWEL DISEASE [None]
  - INTESTINAL OBSTRUCTION [None]
  - IRRITABLE BOWEL SYNDROME [None]
  - WEIGHT DECREASED [None]
